FAERS Safety Report 12185255 (Version 6)
Quarter: 2019Q3

REPORT INFORMATION
  Report Type: Spontaneous
  Country: US (occurrence: US)
  Receive Date: 20160316
  Receipt Date: 20190718
  Transmission Date: 20191004
  Serious: Yes (Hospitalization, Other)
  Sender: FDA-Public Use
  Company Number: US-DSJP-DSU-2015-139880

PATIENT

DRUGS (8)
  1. BENICAR [Suspect]
     Active Substance: OLMESARTAN MEDOXOMIL
     Indication: HYPERTENSION
     Dosage: 20 MG, QD
     Route: 048
     Dates: start: 2003, end: 2009
  2. BENICAR HCT [Suspect]
     Active Substance: HYDROCHLOROTHIAZIDE\OLMESARTAN MEDOXOMIL
     Indication: HYPERTENSION
     Dosage: 40/25 MG, QD
     Route: 048
     Dates: start: 2010, end: 20140620
  3. CORTICOSTEROIDS [Suspect]
     Active Substance: CORTICOSTEROID NOS
     Indication: SEASONAL ALLERGY
  4. BENICAR [Suspect]
     Active Substance: OLMESARTAN MEDOXOMIL
     Dosage: 40 MG, QD
     Route: 048
     Dates: start: 20080804, end: 20140228
  5. BENICAR HCT [Suspect]
     Active Substance: HYDROCHLOROTHIAZIDE\OLMESARTAN MEDOXOMIL
     Dosage: 40-12.5 MG, UNK
  6. CORTICOSTEROIDS [Suspect]
     Active Substance: CORTICOSTEROID NOS
     Indication: DIARRHOEA
     Dosage: UNK
     Dates: start: 20100513, end: 20140122
  7. CORTICOSTEROIDS [Suspect]
     Active Substance: CORTICOSTEROID NOS
     Indication: ADVERSE DRUG REACTION
  8. BENICAR [Suspect]
     Active Substance: OLMESARTAN MEDOXOMIL
     Dosage: 40 MG, QD
     Route: 048
     Dates: start: 20031124, end: 20080730

REACTIONS (17)
  - Peptic ulcer [Not Recovered/Not Resolved]
  - Diverticulum [Not Recovered/Not Resolved]
  - Cataract [Recovered/Resolved]
  - Gastrooesophageal reflux disease [Not Recovered/Not Resolved]
  - Haemorrhoids [Unknown]
  - Renal cyst [Unknown]
  - Gastroenteritis viral [Unknown]
  - Hiatus hernia [Unknown]
  - Headache [Recovered/Resolved]
  - Incontinence [Unknown]
  - Irritable bowel syndrome [Not Recovered/Not Resolved]
  - Sprue-like enteropathy [Recovering/Resolving]
  - Coeliac disease [Not Recovered/Not Resolved]
  - Enteritis [Unknown]
  - Impaired gastric emptying [Unknown]
  - Acute kidney injury [Unknown]
  - Dizziness [Unknown]

NARRATIVE: CASE EVENT DATE: 2005
